FAERS Safety Report 8487134-X (Version None)
Quarter: 2012Q3

REPORT INFORMATION
  Report Type: 
  Country: None (occurrence: None)
  Receive Date: 20120704
  Receipt Date: 20120702
  Transmission Date: 20120928
  Serious: Yes (Other)
  Sender: FDA-Public Use
  Company Number: PHFR2011GB006932

PATIENT
  Sex: Male

DRUGS (8)
  1. CLOZARIL [Suspect]
     Indication: SCHIZOPHRENIA
     Route: 048
     Dates: start: 20020819
  2. CLOZARIL [Suspect]
     Dosage: 650 MG, QD
     Route: 048
  3. VALPROATE SODIUM [Concomitant]
     Dosage: 200 MG, UNK
     Route: 048
     Dates: start: 20111130
  4. CLOZARIL [Suspect]
     Dosage: 750 MG, QD
     Route: 048
  5. CLOZARIL [Suspect]
     Dosage: 500 MG, QD
  6. CLOZARIL [Suspect]
     Dosage: 600 MG, UNK
     Route: 048
  7. HYOSCINE HYDROBROMIDE [Concomitant]
     Dosage: 300 MG, UNK
     Route: 048
  8. LANSOPRAZOLE [Concomitant]
     Indication: GASTRITIS
     Dosage: 30 MG, UNK
     Route: 048

REACTIONS (10)
  - LETHARGY [None]
  - FATIGUE [None]
  - PANIC ATTACK [None]
  - DIZZINESS [None]
  - FEELING ABNORMAL [None]
  - PALPITATIONS [None]
  - CONFUSIONAL STATE [None]
  - HEART RATE INCREASED [None]
  - ANTIPSYCHOTIC DRUG LEVEL INCREASED [None]
  - HAEMATEMESIS [None]
